FAERS Safety Report 5201958-3 (Version None)
Quarter: 2007Q1

REPORT INFORMATION
  Report Type: 
  Country: None (occurrence: None)
  Receive Date: 20070104
  Receipt Date: 20070104
  Transmission Date: 20070707
  Serious: No
  Sender: FDA-Public Use
  Company Number: None

PATIENT
  Age: 77 Year
  Sex: Female

DRUGS (12)
  1. ADALIMUMAB [Suspect]
  2. PREDNISONE [Concomitant]
  3. PANTOPRAZOLE SODIUM [Concomitant]
  4. INSULIN GLARGINE [Concomitant]
  5. INSULIN ASPART [Concomitant]
  6. GLYBURIDE [Concomitant]
  7. MORPHINE [Concomitant]
  8. LABETALOL HCL [Concomitant]
  9. LORATADINE [Concomitant]
  10. ASPIRIN [Concomitant]
  11. COLCHICINE [Concomitant]
  12. TETRACYCLINE [Concomitant]

REACTIONS (2)
  - ARTHRITIS BACTERIAL [None]
  - STAPHYLOCOCCAL INFECTION [None]
